FAERS Safety Report 23725734 (Version 7)
Quarter: 2025Q1

REPORT INFORMATION
  Report Type: Report from Study
  Country: CA (occurrence: CA)
  Receive Date: 20240410
  Receipt Date: 20250112
  Transmission Date: 20250409
  Serious: Yes (Other)
  Sender: JOHNSON AND JOHNSON
  Company Number: CA-JNJFOC-20240419603

PATIENT
  Age: 20 Year
  Sex: Male

DRUGS (1)
  1. REMICADE [Suspect]
     Active Substance: INFLIXIMAB
     Indication: Crohn^s disease
     Dosage: EXPIRY DATE: JA2027
     Route: 041
     Dates: start: 20200514

REACTIONS (9)
  - Ophthalmic herpes zoster [Recovered/Resolved]
  - Clostridium difficile infection [Recovered/Resolved]
  - Acne cystic [Recovered/Resolved]
  - Hidradenitis [Recovered/Resolved]
  - Herpes zoster [Recovered/Resolved]
  - Alopecia [Recovered/Resolved]
  - Nasopharyngitis [Recovered/Resolved]
  - Influenza [Recovered/Resolved]
  - Product dose omission issue [Unknown]
